FAERS Safety Report 14795236 (Version 3)
Quarter: 2018Q3

REPORT INFORMATION
  Report Type: Spontaneous
  Country: US (occurrence: US)
  Receive Date: 20180423
  Receipt Date: 20180822
  Transmission Date: 20181010
  Serious: Yes (Hospitalization)
  Sender: FDA-Public Use
  Company Number: US-ACTELION-A-US2018-167659

PATIENT
  Age: 23 Year
  Sex: Male
  Weight: 70.75 kg

DRUGS (4)
  1. ADCIRCA [Concomitant]
     Active Substance: TADALAFIL
  2. OPSUMIT [Suspect]
     Active Substance: MACITENTAN
     Indication: PULMONARY ARTERIAL HYPERTENSION
     Dosage: 10 MG, QD
     Route: 048
     Dates: start: 20140423
  3. XARELTO [Concomitant]
     Active Substance: RIVAROXABAN
  4. REMODULIN [Concomitant]
     Active Substance: TREPROSTINIL

REACTIONS (9)
  - Dyspnoea [Unknown]
  - Haematemesis [Unknown]
  - Lethargy [Unknown]
  - Device breakage [Unknown]
  - Device malfunction [Unknown]
  - Malaise [Unknown]
  - Device leakage [Unknown]
  - Influenza [Not Recovered/Not Resolved]
  - Asthenia [Unknown]

NARRATIVE: CASE EVENT DATE: 20180131
